FAERS Safety Report 11713380 (Version 4)
Quarter: 2016Q1

REPORT INFORMATION
  Report Type: Spontaneous
  Country: IT (occurrence: IT)
  Receive Date: 20151109
  Receipt Date: 20160121
  Transmission Date: 20160525
  Serious: Yes (Other)
  Sender: FDA-Public Use
  Company Number: IT-ACCORD-035173

PATIENT
  Age: 60 Year
  Sex: Male
  Weight: 54 kg

DRUGS (3)
  1. OXALIPLATIN SUN [Suspect]
     Active Substance: OXALIPLATIN
     Indication: GASTRIC CANCER
     Route: 042
     Dates: start: 20150910, end: 20151202
  2. CALCIUM LEVOFOLINATE [Concomitant]
     Active Substance: LEVOLEUCOVORIN CALCIUM
     Dates: start: 20150910, end: 20151222
  3. FLUOROURACIL. [Suspect]
     Active Substance: FLUOROURACIL
     Indication: GASTRIC CANCER
     Route: 040
     Dates: start: 20150910, end: 20151202

REACTIONS (2)
  - Hyperbilirubinaemia [Recovering/Resolving]
  - Hypercreatininaemia [Unknown]

NARRATIVE: CASE EVENT DATE: 20150924
